FAERS Safety Report 5738915-4 (Version None)
Quarter: 2008Q2

REPORT INFORMATION
  Report Type: 
  Country: None (occurrence: None)
  Receive Date: 20080515
  Receipt Date: 20080507
  Transmission Date: 20081010
  Serious: Yes (Other)
  Sender: FDA-Public Use
  Company Number: US-ROCHE-563146

PATIENT
  Age: 84 Year
  Sex: Female

DRUGS (8)
  1. XELODA [Suspect]
     Indication: UPPER EXTREMITY MASS
     Dosage: DOSAGE RECEIVED 1 WEEK ON AND 1 WEEK OFF.
     Route: 065
     Dates: start: 20080201
  2. ASACOL [Concomitant]
  3. NEXIUM [Concomitant]
  4. MACRODANTIN [Concomitant]
  5. VESICARE [Concomitant]
  6. ZOCOR [Concomitant]
  7. FOSAMAX [Concomitant]
  8. TRANSDERM-NITRO PATCH [Concomitant]

REACTIONS (2)
  - LYMPHOEDEMA [None]
  - MASS [None]
